FAERS Safety Report 12190095 (Version 1)
Quarter: 2016Q1

REPORT INFORMATION
  Report Type: Spontaneous
  Country: US (occurrence: None)
  Receive Date: 20160317
  Receipt Date: 20160317
  Transmission Date: 20160526
  Serious: Yes (Other)
  Sender: FDA-Public Use
  Company Number: None

PATIENT
  Age: 46 Year
  Sex: Female

DRUGS (1)
  1. SIMPONI [Suspect]
     Active Substance: GOLIMUMAB
     Indication: CROHN^S DISEASE
     Dosage: INJECTABLE
     Route: 058
     Dates: start: 20150201, end: 20150501

REACTIONS (2)
  - Therapy cessation [None]
  - Blood pressure increased [None]

NARRATIVE: CASE EVENT DATE: 20150501
